FAERS Safety Report 17845375 (Version 2)
Quarter: 2020Q3

REPORT INFORMATION
  Report Type: Report from Study
  Country: None (occurrence: US)
  Receive Date: 20200601
  Receipt Date: 20200824
  Transmission Date: 20201103
  Serious: Yes (Hospitalization, Other)
  Sender: FDA-Public Use
  Company Number: US-BIOVITRUM-2020US0174

PATIENT
  Age: 44 Year
  Sex: Female

DRUGS (2)
  1. KINERET [Suspect]
     Active Substance: ANAKINRA
     Indication: BEHCET^S SYNDROME
     Route: 058
     Dates: start: 20190508
  2. KINERET [Suspect]
     Active Substance: ANAKINRA
     Route: 058
     Dates: start: 20200508

REACTIONS (16)
  - Condition aggravated [Unknown]
  - Histiocytic necrotising lymphadenitis [Unknown]
  - Pyrexia [Unknown]
  - Candida infection [Recovering/Resolving]
  - Hypertension [Unknown]
  - Nasopharyngitis [Unknown]
  - Neck mass [Unknown]
  - Fungal infection [Unknown]
  - Behcet^s syndrome [Unknown]
  - Influenza [Unknown]
  - Stomatitis [Unknown]
  - Infection [Unknown]
  - Blood sodium decreased [Unknown]
  - Headache [Unknown]
  - White blood cell count decreased [Unknown]
  - Off label use [Not Recovered/Not Resolved]

NARRATIVE: CASE EVENT DATE: 20200508
